FAERS Safety Report 7311286-8 (Version None)
Quarter: 2011Q1

REPORT INFORMATION
  Report Type: 
  Country: None (occurrence: None)
  Receive Date: 20110224
  Receipt Date: 20110211
  Transmission Date: 20110831
  Serious: Yes (Death)
  Sender: FDA-Public Use
  Company Number: US-ACTELION-A-US2011-43704

PATIENT

DRUGS (2)
  1. TRACLEER [Suspect]
     Indication: PULMONARY ARTERIAL HYPERTENSION
     Dosage: UNK MG, UNK
     Route: 048
     Dates: start: 20040625, end: 20101217
  2. CALCIUM CHANNEL BLOCKERS [Concomitant]

REACTIONS (2)
  - HYPOXIA [None]
  - CHRONIC OBSTRUCTIVE PULMONARY DISEASE [None]
